FAERS Safety Report 5292188-8 (Version None)
Quarter: 2007Q2

REPORT INFORMATION
  Report Type: 
  Country: None (occurrence: None)
  Receive Date: 20070410
  Receipt Date: 20070404
  Transmission Date: 20071010
  Serious: Yes (Hospitalization)
  Sender: FDA-Public Use
  Company Number: FR-BRISTOL-MYERS SQUIBB COMPANY-13254743

PATIENT
  Age: 49 Year
  Sex: Female

DRUGS (2)
  1. DASATINIB [Suspect]
     Indication: CHRONIC MYELOID LEUKAEMIA
     Dosage: STOP ON 31-DEC05 RESUME ON 01JAN06
     Route: 048
     Dates: start: 20051003
  2. FLECAINIDE ACETATE [Concomitant]
     Dates: start: 19830101, end: 20051228

REACTIONS (1)
  - PYODERMA GANGRENOSUM [None]
